FAERS Safety Report 11235127 (Version 1)
Quarter: 2015Q3

REPORT INFORMATION
  Report Type: Spontaneous
  Country: DE (occurrence: DE)
  Receive Date: 20150702
  Receipt Date: 20150702
  Transmission Date: 20151125
  Serious: Yes (Other)
  Sender: FDA-Public Use
  Company Number: GXKR2015DE003128

PATIENT
  Age: 76 Year
  Sex: Male
  Weight: 125 kg

DRUGS (2)
  1. AMOXI 1A PHARMA [Suspect]
     Active Substance: AMOXICILLIN
     Indication: BACTERIAL INFECTION
     Dosage: 1000 MG, TID
     Route: 048
     Dates: start: 20150618, end: 20150619
  2. INSULIN [Concomitant]
     Active Substance: INSULIN NOS
     Indication: TYPE 2 DIABETES MELLITUS

REACTIONS (10)
  - Confusional state [Recovering/Resolving]
  - Rash pruritic [Recovering/Resolving]
  - Diabetes mellitus inadequate control [Recovering/Resolving]
  - Hyperglycaemia [Recovering/Resolving]
  - Diplopia [Not Recovered/Not Resolved]
  - Asthenia [Recovering/Resolving]
  - Choking sensation [Recovering/Resolving]
  - Vomiting [Recovering/Resolving]
  - Pain [Recovering/Resolving]
  - Nausea [Recovering/Resolving]

NARRATIVE: CASE EVENT DATE: 20150619
